FAERS Safety Report 14971129 (Version 2)
Quarter: 2018Q2

REPORT INFORMATION
  Report Type: Spontaneous
  Country: GB (occurrence: GB)
  Receive Date: 20180604
  Receipt Date: 20180608
  Transmission Date: 20180711
  Serious: Yes (Hospitalization, Other)
  Sender: FDA-Public Use
  Company Number: GB-MYLANLABS-2018M1036207

PATIENT
  Age: 81 Year
  Sex: Male

DRUGS (8)
  1. HYDROCHLOROTHIAZIDE/LOSARTAN [Suspect]
     Active Substance: HYDROCHLOROTHIAZIDE\LOSARTAN
     Indication: PRODUCT USED FOR UNKNOWN INDICATION
  2. ASPIRIN                            /00002701/ [Concomitant]
     Active Substance: ASPIRIN
     Indication: PRODUCT USED FOR UNKNOWN INDICATION
  3. PREDNISOLONE. [Concomitant]
     Active Substance: PREDNISOLONE
     Indication: PRODUCT USED FOR UNKNOWN INDICATION
     Dosage: 4 MG, UNK
  4. DILTIAZEM. [Concomitant]
     Active Substance: DILTIAZEM
     Indication: PRODUCT USED FOR UNKNOWN INDICATION
  5. GLICLAZIDE [Concomitant]
     Active Substance: GLICLAZIDE
     Indication: PRODUCT USED FOR UNKNOWN INDICATION
  6. ACETYLSALICYLIC ACID [Concomitant]
     Active Substance: ASPIRIN
     Indication: PRODUCT USED FOR UNKNOWN INDICATION
     Dosage: UNK
  7. DOXAZOSIN [Concomitant]
     Active Substance: DOXAZOSIN\DOXAZOSIN MESYLATE
     Indication: PRODUCT USED FOR UNKNOWN INDICATION
  8. CALCIUM CARBONATE. [Suspect]
     Active Substance: CALCIUM CARBONATE
     Indication: DYSPEPSIA
     Dosage: 10-12 (680 MG/TABLET PER DAY) FOR ABOUT 2 YEARS
     Route: 048

REACTIONS (18)
  - Neglect of personal appearance [Recovered/Resolved]
  - Confusional state [Recovered/Resolved]
  - Normocytic anaemia [Recovered/Resolved]
  - Gastritis erosive [None]
  - Erosive oesophagitis [Recovered/Resolved]
  - Renal injury [Recovered/Resolved]
  - Adjusted calcium increased [Recovered/Resolved]
  - Drug abuse [Recovered/Resolved]
  - Disorientation [Recovered/Resolved]
  - Hypercalcaemia [Recovered/Resolved]
  - Discoloured vomit [Recovered/Resolved]
  - Ischaemia [Recovered/Resolved]
  - Milk-alkali syndrome [Recovered/Resolved]
  - Metabolic alkalosis [Recovered/Resolved]
  - Muscular weakness [Recovered/Resolved]
  - Condition aggravated [Recovered/Resolved]
  - Dyspepsia [Recovered/Resolved]
  - Erosive duodenitis [None]
